FAERS Safety Report 6130000-5 (Version None)
Quarter: 2009Q1

REPORT INFORMATION
  Report Type: 
  Country: None (occurrence: None)
  Receive Date: 20090323
  Receipt Date: 20090323
  Transmission Date: 20090719
  Serious: Yes (Disabling, Other)
  Sender: FDA-Public Use
  Company Number: None

PATIENT
  Age: 50 Year
  Sex: Male
  Weight: 100.6985 kg

DRUGS (2)
  1. AVELOX [Suspect]
     Indication: BRONCHITIS
     Dates: start: 20080301, end: 20080310
  2. AVELOX [Suspect]
     Indication: SINUSITIS
     Dates: start: 20080301, end: 20080310

REACTIONS (5)
  - CUBITAL TUNNEL SYNDROME [None]
  - IMPAIRED WORK ABILITY [None]
  - PAIN [None]
  - TENDON RUPTURE [None]
  - TENDONITIS [None]
